FAERS Safety Report 12982020 (Version 1)
Quarter: 2016Q4

REPORT INFORMATION
  Report Type: Spontaneous
  Country: JP (occurrence: JP)
  Receive Date: 20161129
  Receipt Date: 20161129
  Transmission Date: 20170207
  Serious: Yes (Life-Threatening)
  Sender: FDA-Public Use
  Company Number: JP-SA-2016SA212445

PATIENT
  Age: 55 Year
  Sex: Male

DRUGS (1)
  1. OXALIPLATIN. [Suspect]
     Active Substance: OXALIPLATIN
     Route: 065

REACTIONS (1)
  - Inappropriate antidiuretic hormone secretion [Unknown]
